FAERS Safety Report 4953488-1 (Version None)
Quarter: 2006Q1

REPORT INFORMATION
  Report Type: 
  Country: None (occurrence: None)
  Receive Date: 20060127
  Receipt Date: 20051020
  Transmission Date: 20060701
  Serious: Yes (Other)
  Sender: FDA-Public Use
  Company Number: 2005-US-00942

PATIENT
  Age: 40 Year
  Sex: Male

DRUGS (1)
  1. CLOZAPINE [Suspect]
     Indication: SCHIZOPHRENIA
     Dosage: 475 MG QD, ORAL
     Route: 048
     Dates: start: 20031101, end: 20051017

REACTIONS (1)
  - GRANULOCYTOPENIA [None]
